FAERS Safety Report 17178604 (Version 1)
Quarter: 2019Q4

REPORT INFORMATION
  Report Type: Spontaneous
  Country: US (occurrence: US)
  Receive Date: 20191219
  Receipt Date: 20191219
  Transmission Date: 20200122
  Serious: Yes (Other)
  Sender: FDA-Public Use
  Company Number: US-TAKEDA-2019TUS069684

PATIENT
  Age: 22 Year
  Sex: Male

DRUGS (1)
  1. ENTYVIO [Suspect]
     Active Substance: VEDOLIZUMAB
     Indication: CROHN^S DISEASE
     Dosage: UNK UNK, Q4WEEKS
     Route: 065

REACTIONS (2)
  - Hepatosplenic T-cell lymphoma [Recovered/Resolved]
  - Off label use [Unknown]
